FAERS Safety Report 11701482 (Version 1)
Quarter: 2015Q4

REPORT INFORMATION
  Report Type: Spontaneous
  Country: NL (occurrence: NL)
  Receive Date: 20151105
  Receipt Date: 20151105
  Transmission Date: 20160304
  Serious: Yes (Other)
  Sender: FDA-Public Use
  Company Number: NL-TEVA-606436ISR

PATIENT
  Age: 74 Year
  Sex: Female

DRUGS (1)
  1. AMOXICILLINE/CLAVULAANZUUR [Suspect]
     Active Substance: AMOXICILLIN\CLAVULANATE POTASSIUM
     Indication: PRODUCTIVE COUGH

REACTIONS (3)
  - Liver abscess [Recovered/Resolved]
  - Lemierre syndrome [Recovered/Resolved]
  - Sepsis [Recovered/Resolved]
